FAERS Safety Report 4813332-X (Version None)
Quarter: 2005Q4

REPORT INFORMATION
  Report Type: 
  Country: None (occurrence: None)
  Receive Date: 20051028
  Receipt Date: 20050503
  Transmission Date: 20060501
  Serious: No
  Sender: FDA-Public Use
  Company Number: US-GLAXOSMITHKLINE-A0557076A

PATIENT
  Age: 60 Year
  Sex: Female

DRUGS (6)
  1. ADVAIR DISKUS 100/50 [Suspect]
     Indication: ASTHMA
     Dosage: 1PUFF TWICE PER DAY
     Route: 055
  2. NASONEX [Concomitant]
  3. ACCOLATE [Concomitant]
  4. PROVENTIL [Concomitant]
  5. ARIMIDEX [Concomitant]
  6. LASIX [Concomitant]

REACTIONS (3)
  - FEELING JITTERY [None]
  - GASTRIC DISORDER [None]
  - HEART RATE INCREASED [None]
